FAERS Safety Report 26063044 (Version 1)
Quarter: 2025Q4

REPORT INFORMATION
  Report Type: Spontaneous
  Country: EU (occurrence: EU)
  Receive Date: 20251119
  Receipt Date: 20251119
  Transmission Date: 20260118
  Serious: Yes (Other)
  Sender: CHEPLAPHARM
  Company Number: EU-ROCHE-10000426983

PATIENT
  Age: 11 Year
  Sex: Female

DRUGS (11)
  1. VALGANCICLOVIR [Suspect]
     Active Substance: VALGANCICLOVIR
     Indication: Infection prophylaxis
  2. COTRIMOXAZOLE [Suspect]
     Active Substance: SULFAMETHOXAZOLE\TRIMETHOPRIM
     Indication: Infection prophylaxis
  3. CYCLOSPORINE [Concomitant]
     Active Substance: CYCLOSPORINE
     Indication: Therapy partial responder
  4. TACROLIMUS [Concomitant]
     Active Substance: TACROLIMUS
     Indication: Prophylaxis against transplant rejection
     Dosage: ADJUSTED TO TROUGH LEVELS 7-9 NG/ML
  5. MYCOPHENOLATE MOFETIL [Concomitant]
     Active Substance: MYCOPHENOLATE MOFETIL
     Indication: Prophylaxis against transplant rejection
  6. RITUXIMAB [Concomitant]
     Active Substance: RITUXIMAB
     Indication: Anaphylactic reaction
     Dosage: AT +6W
  7. RITUXIMAB [Concomitant]
     Active Substance: RITUXIMAB
     Indication: Nephrotic syndrome
     Dosage: AT +6W
  8. BASILIXIMAB [Concomitant]
     Active Substance: BASILIXIMAB
     Indication: Prophylaxis against transplant rejection
  9. OBINUTUZUMAB [Concomitant]
     Active Substance: OBINUTUZUMAB
     Indication: Focal segmental glomerulosclerosis
     Dosage: AT +10 W
  10. DARATUMUMAB [Concomitant]
     Active Substance: DARATUMUMAB
     Indication: Focal segmental glomerulosclerosis
     Dosage: 3 DOSES AT 16 MG/KG/DOSE GIVEN AS SPLIT 2-DAY INFUSIONS
  11. LOSARTAN [Concomitant]
     Active Substance: LOSARTAN
     Indication: Proteinuria

REACTIONS (3)
  - Neutropenia [Unknown]
  - Hypogammaglobulinaemia [Unknown]
  - Cytomegalovirus infection [Unknown]
